FAERS Safety Report 14008148 (Version 1)
Quarter: 2017Q3

REPORT INFORMATION
  Report Type: Spontaneous
  Country: US (occurrence: None)
  Receive Date: 20170924
  Receipt Date: 20170924
  Transmission Date: 20171128
  Serious: Yes (Other)
  Sender: FDA-Public Use
  Company Number: None

PATIENT
  Age: 86 Year
  Sex: Male

DRUGS (1)
  1. IMATINIB 100MG RANBAXY [Suspect]
     Active Substance: IMATINIB
     Indication: MYELOID LEUKAEMIA
     Route: 048
     Dates: start: 20140106

REACTIONS (2)
  - Unevaluable event [None]
  - Product substitution issue [None]

NARRATIVE: CASE EVENT DATE: 20170801
